FAERS Safety Report 23333965 (Version 2)
Quarter: 2025Q3

REPORT INFORMATION
  Report Type: Spontaneous
  Country: US (occurrence: US)
  Receive Date: 20231223
  Receipt Date: 20250902
  Transmission Date: 20251020
  Serious: No
  Sender: SANOFI AVENTIS
  Company Number: US-SANOFI-01876725

PATIENT
  Age: 65 Year
  Sex: Female
  Weight: 104 kg

DRUGS (9)
  1. DUPIXENT [Suspect]
     Active Substance: DUPILUMAB
     Indication: Asthma
     Dosage: 200 MG, QOW
     Route: 058
     Dates: start: 20230418
  2. MONTELUKAST [Concomitant]
     Active Substance: MONTELUKAST
  3. MINOCYCLINE [Concomitant]
     Active Substance: MINOCYCLINE HYDROCHLORIDE
  4. VITAMIN D NOS [Concomitant]
     Active Substance: CHOLECALCIFEROL\ERGOCALCIFEROL
  5. NASACORT [Concomitant]
     Active Substance: TRIAMCINOLONE ACETONIDE
  6. OMEPRAZOLE [Concomitant]
     Active Substance: OMEPRAZOLE
  7. CALCIUM CARBONATE [Concomitant]
     Active Substance: CALCIUM CARBONATE
  8. METRONIDAZOLE [Concomitant]
     Active Substance: METRONIDAZOLE
  9. GLIPIZIDE [Concomitant]
     Active Substance: GLIPIZIDE

REACTIONS (2)
  - Injection site erythema [Unknown]
  - Product preparation error [Unknown]

NARRATIVE: CASE EVENT DATE: 20231213
